FAERS Safety Report 26087818 (Version 1)
Quarter: 2025Q4

REPORT INFORMATION
  Report Type: Spontaneous
  Country: US (occurrence: None)
  Receive Date: 20251125
  Receipt Date: 20251125
  Transmission Date: 20260118
  Serious: No
  Sender: AMERICAN REGENT
  Company Number: US-AMERICAN REGENT INC-2025001477

PATIENT
  Sex: Female

DRUGS (3)
  1. VENOFER [Suspect]
     Active Substance: IRON SUCROSE
     Indication: Serum ferritin decreased
     Dosage: UNK ONCE EVERY TWO WEEKS
  2. VENOFER [Suspect]
     Active Substance: IRON SUCROSE
     Dosage: UNK ONCE EVERY TWO WEEKS
  3. VENOFER [Suspect]
     Active Substance: IRON SUCROSE
     Dosage: UNK

REACTIONS (2)
  - Migraine [Recovered/Resolved]
  - Malaise [Recovered/Resolved]
